FAERS Safety Report 8185335-1 (Version None)
Quarter: 2012Q1

REPORT INFORMATION
  Report Type: 
  Country: None (occurrence: None)
  Receive Date: 20120305
  Receipt Date: 20120228
  Transmission Date: 20120608
  Serious: Yes (Other)
  Sender: FDA-Public Use
  Company Number: PHHY2011US34817

PATIENT
  Sex: Female

DRUGS (10)
  1. PLAVIX [Concomitant]
     Dosage: 5 MG, UNK
     Route: 042
  2. RECLAST [Suspect]
     Dosage: UNK UKN, UNK
     Route: 042
     Dates: start: 20111101
  3. SIMVASTATIN [Concomitant]
     Dosage: UNK UKN, UNK
  4. VITAMIN D [Concomitant]
     Dosage: UNK UKN, UNK
  5. VITAMIN TAB [Concomitant]
     Dosage: UNK UKN, UNK
  6. HYDROCHLOROTHIAZIDE [Concomitant]
     Dosage: UNK UKN, UNK
  7. POTASSIUM CHLORIDE [Concomitant]
     Dosage: UNK UKN, UNK
  8. CALCIUM [Concomitant]
     Dosage: UNK UKN, UNK
  9. RECLAST [Suspect]
     Dosage: UNK UKN, UNK
     Route: 042
     Dates: start: 20101101
  10. MULTI-VITAMINS [Concomitant]
     Dosage: UNK UKN, UNK

REACTIONS (3)
  - TOOTHACHE [None]
  - DENTAL DISCOMFORT [None]
  - NAUSEA [None]
